FAERS Safety Report 13013810 (Version 2)
Quarter: 2017Q1

REPORT INFORMATION
  Report Type: Report from Study
  Country: US (occurrence: US)
  Receive Date: 20161209
  Receipt Date: 20170103
  Transmission Date: 20170428
  Serious: Yes (Other)
  Sender: FDA-Public Use
  Company Number: US-JNJFOC-20161208247

PATIENT
  Sex: Female

DRUGS (17)
  1. PRILOSEC [Concomitant]
     Active Substance: OMEPRAZOLE MAGNESIUM
  2. BENADRYL [Concomitant]
     Active Substance: DIPHENHYDRAMINE HYDROCHLORIDE
  3. NORCO [Concomitant]
     Active Substance: ACETAMINOPHEN\HYDROCODONE BITARTRATE
  4. BACLOFEN. [Concomitant]
     Active Substance: BACLOFEN
  5. VITRON-C [Concomitant]
  6. SALINE [Concomitant]
     Active Substance: SODIUM CHLORIDE
  7. BUPIVACAINE. [Concomitant]
     Active Substance: BUPIVACAINE
  8. GABAPENTIN. [Concomitant]
     Active Substance: GABAPENTIN
  9. AMANTADINE [Concomitant]
     Active Substance: AMANTADINE
  10. MIRALAX [Concomitant]
     Active Substance: POLYETHYLENE GLYCOL 3350
  11. CELEBREX [Concomitant]
     Active Substance: CELECOXIB
  12. IMBRUVICA [Suspect]
     Active Substance: IBRUTINIB
     Indication: PRODUCT USED FOR UNKNOWN INDICATION
     Route: 048
     Dates: start: 20150306
  13. DICLOFENAC [Concomitant]
     Active Substance: DICLOFENAC
  14. CYCLOBENZAPRIN HCL [Concomitant]
     Active Substance: CYCLOBENZAPRINE HYDROCHLORIDE
  15. PENTOXIFYLLINE. [Concomitant]
     Active Substance: PENTOXIFYLLINE
  16. KLOR-CON [Concomitant]
     Active Substance: POTASSIUM CHLORIDE
  17. BENZYLPENICILLIN [Concomitant]
     Active Substance: PENICILLIN G

REACTIONS (2)
  - Dry eye [Unknown]
  - Eye haemorrhage [Unknown]
